FAERS Safety Report 6495216-7 (Version None)
Quarter: 2009Q4

REPORT INFORMATION
  Report Type: 
  Country: None (occurrence: None)
  Receive Date: 20091214
  Receipt Date: 20090514
  Transmission Date: 20100525
  Serious: No
  Sender: FDA-Public Use
  Company Number: US-BRISTOL-MYERS SQUIBB COMPANY-14624423

PATIENT
  Age: 68 Year
  Sex: Female
  Weight: 86 kg

DRUGS (8)
  1. ABILIFY [Suspect]
     Indication: MAJOR DEPRESSION
     Dosage: DURATION: 2 MONTHS AGO
     Dates: start: 20090101
  2. LEXAPRO [Concomitant]
  3. DIOVAN HCT [Concomitant]
  4. VYTORIN [Concomitant]
  5. PROPOXYPHENE HCL AND ACETAMINOPHEN [Concomitant]
  6. VALTREX [Concomitant]
  7. CENTRUM SILVER [Concomitant]
  8. BECLOVENT [Concomitant]
     Route: 055

REACTIONS (3)
  - INCREASED APPETITE [None]
  - RESTLESSNESS [None]
  - WEIGHT INCREASED [None]
